FAERS Safety Report 11397674 (Version 1)
Quarter: 2015Q3

REPORT INFORMATION
  Report Type: Spontaneous
  Country: CA (occurrence: CA)
  Receive Date: 20150819
  Receipt Date: 20150819
  Transmission Date: 20151125
  Serious: Yes (Hospitalization)
  Sender: FDA-Public Use
  Company Number: CA-ACTELION-A-US2015-122292

PATIENT
  Age: 59 Year
  Sex: Male

DRUGS (11)
  1. POTASSIUM [Concomitant]
     Active Substance: POTASSIUM
  2. FOLIC ACID. [Concomitant]
     Active Substance: FOLIC ACID
  3. OPSUMIT [Suspect]
     Active Substance: MACITENTAN
     Indication: PULMONARY HYPERTENSION
     Route: 048
  4. SPIRIVA [Concomitant]
     Active Substance: TIOTROPIUM BROMIDE MONOHYDRATE
  5. OXYGEN. [Concomitant]
     Active Substance: OXYGEN
     Dosage: 4 L, UNK
  6. BISPROLOL COMP [Concomitant]
  7. WARFARIN [Concomitant]
     Active Substance: WARFARIN
  8. CRESTOR [Concomitant]
     Active Substance: ROSUVASTATIN CALCIUM
  9. CARIPUL [Suspect]
     Active Substance: EPOPROSTENOL
     Indication: PULMONARY HYPERTENSION
     Dosage: 15000 NG/KG, UNK
     Route: 042
     Dates: start: 20150715
  10. FUROSEMIDE. [Concomitant]
     Active Substance: FUROSEMIDE
  11. MULTIVITE [Concomitant]
     Active Substance: VITAMINS

REACTIONS (2)
  - Hypoxia [Not Recovered/Not Resolved]
  - Pulmonary oedema [Not Recovered/Not Resolved]
